FAERS Safety Report 8387954-6 (Version None)
Quarter: 2012Q2

REPORT INFORMATION
  Report Type: 
  Country: None (occurrence: None)
  Receive Date: 20120525
  Receipt Date: 20120517
  Transmission Date: 20120825
  Serious: Yes (Disabling, Other)
  Sender: FDA-Public Use
  Company Number: US-MERCK-1201USA01459

PATIENT
  Age: 67 Year
  Sex: Female

DRUGS (3)
  1. FOSAMAX [Suspect]
     Route: 048
     Dates: start: 20001008, end: 20101002
  2. NORVASC [Concomitant]
     Route: 065
  3. FOSAMAX [Suspect]
     Indication: OSTEOPOROSIS
     Route: 048
     Dates: start: 19960719, end: 19980910

REACTIONS (6)
  - LOW TURNOVER OSTEOPATHY [None]
  - STRESS FRACTURE [None]
  - FEMUR FRACTURE [None]
  - CHRONIC OBSTRUCTIVE PULMONARY DISEASE [None]
  - VITAMIN D DEFICIENCY [None]
  - BLOOD CHOLESTEROL INCREASED [None]
